FAERS Safety Report 26074136 (Version 1)
Quarter: 2025Q4

REPORT INFORMATION
  Report Type: Report from Study
  Country: ZA (occurrence: ZA)
  Receive Date: 20251121
  Receipt Date: 20251121
  Transmission Date: 20260118
  Serious: Yes (Hospitalization)
  Sender: ALEXION PHARMACEUTICALS
  Company Number: ZA-AstraZeneca-CH-00994430A

PATIENT
  Age: 67 Year
  Sex: Female

DRUGS (8)
  1. BUDESONIDE\FORMOTEROL [Suspect]
     Active Substance: BUDESONIDE\FORMOTEROL
     Indication: Asthma
     Dosage: 60 MILLIGRAM
  2. ISOSORBIDE MONONITRATE [Concomitant]
     Active Substance: ISOSORBIDE MONONITRATE
     Indication: Angina pectoris
     Route: 065
  3. Fexogen [Concomitant]
     Route: 065
  4. ASPIRIN [Concomitant]
     Active Substance: ASPIRIN
     Route: 065
  5. Valduo [Concomitant]
     Indication: Hypertension
     Route: 065
  6. IVABRADINE HYDROCHLORIDE [Concomitant]
     Active Substance: IVABRADINE HYDROCHLORIDE
     Route: 065
  7. Lipogen [Concomitant]
     Indication: Blood cholesterol
     Route: 065
  8. Mibitez [Concomitant]
     Indication: Hyperlipidaemia
     Route: 065

REACTIONS (1)
  - Lower limb fracture [Unknown]
